FAERS Safety Report 8302333-5 (Version None)
Quarter: 2012Q2

REPORT INFORMATION
  Report Type: 
  Country: None (occurrence: None)
  Receive Date: 20120420
  Receipt Date: 20120413
  Transmission Date: 20120825
  Serious: Yes (Other)
  Sender: FDA-Public Use
  Company Number: FI-JNJFOC-20120408302

PATIENT
  Sex: Female

DRUGS (1)
  1. NICORETTE CHEWING GUMS [Suspect]
     Indication: SMOKING CESSATION THERAPY
     Dosage: FOR OVER 1 YEAR EVERYDAY
     Route: 048

REACTIONS (3)
  - DRUG DEPENDENCE [None]
  - INCORRECT DRUG ADMINISTRATION DURATION [None]
  - WITHDRAWAL SYNDROME [None]
